FAERS Safety Report 9192606 (Version 1)
Quarter: 2013Q1

REPORT INFORMATION
  Report Type: Spontaneous
  Country: US (occurrence: None)
  Receive Date: 20130326
  Receipt Date: 20130326
  Transmission Date: 20140127
  Serious: Yes (Other)
  Sender: FDA-Public Use
  Company Number: None

PATIENT
  Sex: Female

DRUGS (1)
  1. REMICADE [Suspect]
     Indication: RHEUMATOID ARTHRITIS
     Dosage: 500 MG WEEK 0,2,6 AND 6 WKS IV ?ONCE IN MARCH 2013
     Route: 042
     Dates: start: 201303

REACTIONS (3)
  - Chills [None]
  - Tremor [None]
  - Drug hypersensitivity [None]
